FAERS Safety Report 25442149 (Version 1)
Quarter: 2025Q2

REPORT INFORMATION
  Report Type: Spontaneous
  Country: US (occurrence: US)
  Receive Date: 20250616
  Receipt Date: 20250616
  Transmission Date: 20250717
  Serious: No
  Sender: PRASCO
  Company Number: US-Prasco Laboratories-PRAS20250264

PATIENT
  Sex: Female

DRUGS (1)
  1. ESTRADIOL [Suspect]
     Active Substance: ESTRADIOL
     Indication: Postmenopause
     Dosage: 1 GRAM PLUS A LITTLE HERE AND THERE
     Route: 067

REACTIONS (3)
  - Vulvovaginal discomfort [Unknown]
  - Vulvovaginal swelling [Unknown]
  - Off label use [Unknown]

NARRATIVE: CASE EVENT DATE: 20250601
